FAERS Safety Report 18468337 (Version 1)
Quarter: 2020Q4

REPORT INFORMATION
  Report Type: Report from Study
  Country: IL (occurrence: IL)
  Receive Date: 20201105
  Receipt Date: 20201105
  Transmission Date: 20210114
  Serious: Yes (Hospitalization, Disabling, Other)
  Sender: FDA-Public Use
  Company Number: IL-SA-2018SA297784

PATIENT

DRUGS (1)
  1. ALEMTUZUMAB [Suspect]
     Active Substance: ALEMTUZUMAB
     Indication: MULTIPLE SCLEROSIS
     Dosage: 36 MG, QD FOR 3 DAYS
     Route: 041
     Dates: start: 20181007, end: 20181010

REACTIONS (14)
  - Seizure [Unknown]
  - Urinary tract infection [Recovering/Resolving]
  - Condition aggravated [Unknown]
  - Musculoskeletal disorder [Unknown]
  - Bedridden [Recovered/Resolved]
  - Condition aggravated [Not Recovered/Not Resolved]
  - Asthenia [Recovered/Resolved]
  - Thyroid disorder [Unknown]
  - Multiple sclerosis relapse [Unknown]
  - Pyrexia [Unknown]
  - Motor dysfunction [Unknown]
  - Dysstasia [Unknown]
  - Influenza [Not Recovered/Not Resolved]
  - Gait disturbance [Not Recovered/Not Resolved]

NARRATIVE: CASE EVENT DATE: 2018
